FAERS Safety Report 10729307 (Version 1)
Quarter: 2015Q1

REPORT INFORMATION
  Report Type: Spontaneous
  Country: US (occurrence: None)
  Receive Date: 20150120
  Receipt Date: 20150120
  Transmission Date: 20150721
  Serious: No
  Sender: FDA-Public Use
  Company Number: None

PATIENT
  Age: 35 Year
  Sex: Female
  Weight: 64.86 kg

DRUGS (1)
  1. COOL HEAT [Suspect]
     Active Substance: MENTHOL\METHYL SALICYLATE
     Indication: MYALGIA
     Dosage: APPLIED TO A SURFACE, USUALLY THE SKIN
     Route: 061
     Dates: start: 20150118, end: 20150118

REACTIONS (3)
  - Application site pain [None]
  - Product substitution issue [None]
  - Application site erythema [None]

NARRATIVE: CASE EVENT DATE: 20150118
